FAERS Safety Report 8600663-0 (Version None)
Quarter: 2012Q3

REPORT INFORMATION
  Report Type: 
  Country: None (occurrence: None)
  Receive Date: 20120817
  Receipt Date: 20120807
  Transmission Date: 20120928
  Serious: Yes (Other)
  Sender: FDA-Public Use
  Company Number: US-JNJFOC-20120804433

PATIENT
  Sex: Female
  Weight: 62.14 kg

DRUGS (2)
  1. REMICADE [Suspect]
     Route: 042
  2. REMICADE [Suspect]
     Indication: RHEUMATOID ARTHRITIS
     Route: 042
     Dates: start: 20120731

REACTIONS (8)
  - FLUID RETENTION [None]
  - PAIN IN EXTREMITY [None]
  - INFUSION RELATED REACTION [None]
  - NAUSEA [None]
  - NERVOUS SYSTEM DISORDER [None]
  - INFUSION SITE HAEMATOMA [None]
  - DISORIENTATION [None]
  - ADVERSE EVENT [None]
